FAERS Safety Report 7644491-1 (Version None)
Quarter: 2011Q3

REPORT INFORMATION
  Report Type: 
  Country: None (occurrence: None)
  Receive Date: 20110729
  Receipt Date: 20110720
  Transmission Date: 20111222
  Serious: Yes (Other)
  Sender: FDA-Public Use
  Company Number: JP-ROCHE-792547

PATIENT
  Age: 60 Year
  Sex: Female

DRUGS (1)
  1. ACTEMRA [Suspect]
     Dosage: DOSAGE IS UNCERTAIN
     Route: 042
     Dates: start: 20101001, end: 20101001

REACTIONS (1)
  - LIVER DISORDER [None]
